FAERS Safety Report 9247839 (Version 1)
Quarter: 2013Q2

REPORT INFORMATION
  Report Type: Report from Study
  Country: GB (occurrence: GB)
  Receive Date: 20130423
  Receipt Date: 20130423
  Transmission Date: 20140414
  Serious: Yes (Hospitalization)
  Sender: FDA-Public Use
  Company Number: GB-BRISTOL-MYERS SQUIBB COMPANY-18788505

PATIENT
  Age: 83 Year
  Sex: Male

DRUGS (13)
  1. SPRYCEL [Suspect]
     Indication: CHRONIC MYELOID LEUKAEMIA
     Route: 048
     Dates: start: 20090508
  2. FUROSEMIDE [Concomitant]
     Indication: PLEURAL EFFUSION
     Route: 048
  3. OMEPRAZOLE [Concomitant]
     Indication: PROPHYLAXIS
     Route: 048
  4. FERROUS FUMARATE [Concomitant]
     Route: 048
  5. FINASTERIDE [Concomitant]
     Route: 048
  6. EPILIM [Concomitant]
     Indication: EPILEPSY
     Route: 048
  7. TAMSULOSIN [Concomitant]
     Route: 048
  8. SIMVASTIN [Concomitant]
     Indication: BLOOD CHOLESTEROL INCREASED
     Route: 048
  9. ASPIRIN [Concomitant]
     Route: 048
  10. SALBUTAMOL [Concomitant]
     Indication: CHRONIC OBSTRUCTIVE PULMONARY DISEASE
     Route: 055
  11. DIHYDROCODEINE [Concomitant]
     Route: 048
  12. SPIRIVA [Concomitant]
     Route: 048
  13. TILDIEM [Concomitant]
     Route: 048

REACTIONS (1)
  - Chronic obstructive pulmonary disease [Recovered/Resolved with Sequelae]
